FAERS Safety Report 7679467-1 (Version None)
Quarter: 2011Q3

REPORT INFORMATION
  Report Type: 
  Country: None (occurrence: None)
  Receive Date: 20110812
  Receipt Date: 20110812
  Transmission Date: 20111222
  Serious: Yes (Other)
  Sender: FDA-Public Use
  Company Number: None

PATIENT
  Age: 27 Year
  Sex: Male
  Weight: 107.5 kg

DRUGS (2)
  1. ANDROGEL [Suspect]
     Indication: BLOOD TESTOSTERONE DECREASED
     Dosage: 5 PUMPS
     Route: 062
     Dates: start: 20110201, end: 20110726
  2. ANDROGEL [Concomitant]
     Indication: PRODUCT FORMULATION ISSUE
     Dosage: 3 PUMPS
     Route: 062
     Dates: start: 20110726, end: 20110811

REACTIONS (16)
  - DEPRESSION [None]
  - ANXIETY [None]
  - PERSONALITY CHANGE [None]
  - MOOD SWINGS [None]
  - BINGE EATING [None]
  - FEELING GUILTY [None]
  - ABNORMAL BEHAVIOUR [None]
  - SELF-INJURIOUS IDEATION [None]
  - ANGER [None]
  - IMPULSE-CONTROL DISORDER [None]
  - PROMISCUITY [None]
  - PARTNER STRESS [None]
  - MANIA [None]
  - ROAD TRAFFIC ACCIDENT [None]
  - FEELING ABNORMAL [None]
  - MEMORY IMPAIRMENT [None]
